FAERS Safety Report 19762686 (Version 1)
Quarter: 2021Q3

REPORT INFORMATION
  Report Type: Spontaneous
  Country: US (occurrence: US)
  Receive Date: 20210830
  Receipt Date: 20210830
  Transmission Date: 20211014
  Serious: No
  Sender: FDA-Public Use
  Company Number: US-GLAXOSMITHKLINE-USCH2021057610

PATIENT
  Age: 75 Year
  Sex: Female

DRUGS (1)
  1. VOLTAREN ARTHRITIS PAIN [Suspect]
     Active Substance: DICLOFENAC SODIUM
     Indication: INFLAMMATION
     Dosage: UNK
     Dates: start: 20210823

REACTIONS (5)
  - Glossodynia [Unknown]
  - Paraesthesia [Unknown]
  - Tongue discomfort [Unknown]
  - Wrong technique in product usage process [Unknown]
  - Lip pain [Unknown]
